FAERS Safety Report 13769071 (Version 1)
Quarter: 2017Q3

REPORT INFORMATION
  Report Type: Spontaneous
  Country: US (occurrence: US)
  Receive Date: 20170719
  Receipt Date: 20170719
  Transmission Date: 20171127
  Serious: No
  Sender: FDA-Public Use
  Company Number: US-BAUSCH-BL-2016-023866

PATIENT
  Age: 67 Year
  Sex: Female

DRUGS (1)
  1. XIFAXAN [Suspect]
     Active Substance: RIFAXIMIN
     Indication: IRRITABLE BOWEL SYNDROME
     Route: 065
     Dates: start: 20160912

REACTIONS (4)
  - Drug dose omission [Unknown]
  - Abdominal distension [Unknown]
  - Nausea [Unknown]
  - Breath odour [Unknown]

NARRATIVE: CASE EVENT DATE: 20160912
